FAERS Safety Report 15098941 (Version 4)
Quarter: 2018Q4

REPORT INFORMATION
  Report Type: Spontaneous
  Country: JP (occurrence: JP)
  Receive Date: 20180702
  Receipt Date: 20181217
  Transmission Date: 20190204
  Serious: Yes (Other)
  Sender: FDA-Public Use
  Company Number: JP-PFIZER INC-2018264174

PATIENT
  Age: 71 Year
  Sex: Male
  Weight: 59 kg

DRUGS (2)
  1. LYRICA [Suspect]
     Active Substance: PREGABALIN
     Indication: NEURALGIA
     Dosage: 75 MG, 2X/DAY
     Route: 048
     Dates: end: 20180430
  2. CALONAL [Suspect]
     Active Substance: ACETAMINOPHEN
     Dosage: 600 MG, DAILY
     Route: 048
     Dates: end: 20180427

REACTIONS (4)
  - Drug-induced liver injury [Recovered/Resolved]
  - Blood potassium increased [Recovered/Resolved]
  - C-reactive protein increased [Recovered/Resolved]
  - Cerebrospinal fluid leakage [Unknown]

NARRATIVE: CASE EVENT DATE: 20180425
